FAERS Safety Report 4835795-6 (Version None)
Quarter: 2005Q4

REPORT INFORMATION
  Report Type: 
  Country: None (occurrence: None)
  Receive Date: 20051118
  Receipt Date: 20051109
  Transmission Date: 20060501
  Serious: Yes (Other)
  Sender: FDA-Public Use
  Company Number: 2005153668

PATIENT
  Age: 64 Year
  Sex: Female
  Weight: 63.05 kg

DRUGS (5)
  1. ZOLOFT [Suspect]
     Indication: ANXIETY
  2. ZOLOFT [Suspect]
     Indication: DEPRESSION
  3. DETROL LA [Suspect]
     Indication: POLLAKIURIA
     Dosage: 4 MG (4 MG, 1 IN 1 D), ORAL
     Route: 048
  4. LEVOXYL [Concomitant]
  5. ALL OTHER THERAPEUTIC PRODUCTS (ALL OTHER THERAPEUTIC PRODUCTS) [Concomitant]

REACTIONS (9)
  - ANXIETY [None]
  - BODY HEIGHT DECREASED [None]
  - DRUG INEFFECTIVE [None]
  - DRY MOUTH [None]
  - ECONOMIC PROBLEM [None]
  - MICTURITION URGENCY [None]
  - MYOCARDIAL INFARCTION [None]
  - POLLAKIURIA [None]
  - TREATMENT NONCOMPLIANCE [None]
